FAERS Safety Report 9337540 (Version 1)
Quarter: 2013Q2

REPORT INFORMATION
  Report Type: Spontaneous
  Country: DE (occurrence: DE)
  Receive Date: 20130607
  Receipt Date: 20130607
  Transmission Date: 20140414
  Serious: Yes (Other)
  Sender: FDA-Public Use
  Company Number: DE-UCBSA-087235

PATIENT
  Sex: Female

DRUGS (2)
  1. XUSAL [Suspect]
     Dosage: UNKNOWN DOSE ONCE DAILY
  2. NO CONCOMITANT MEDICATION [Concomitant]

REACTIONS (1)
  - Retinal vein thrombosis [Unknown]
